FAERS Safety Report 4788776-5 (Version None)
Quarter: 2005Q3

REPORT INFORMATION
  Report Type: 
  Country: None (occurrence: None)
  Receive Date: 20050915
  Receipt Date: 20050610
  Transmission Date: 20060218
  Serious: No
  Sender: FDA-Public Use
  Company Number: BDI-007298

PATIENT
  Age: 61 Year
  Sex: Female
  Weight: 72 kg

DRUGS (1)
  1. MULTIHANCE [Suspect]
     Dosage: 50 ML ONCE IV
     Route: 042
     Dates: start: 20050525, end: 20050525

REACTIONS (1)
  - HYPERSENSITIVITY [None]
